FAERS Safety Report 4575040-2 (Version None)
Quarter: 2005Q1

REPORT INFORMATION
  Report Type: 
  Country: None (occurrence: None)
  Receive Date: 20050208
  Receipt Date: 20050128
  Transmission Date: 20050727
  Serious: Yes (Hospitalization)
  Sender: FDA-Public Use
  Company Number: US-SANOFI-SYNTHELABO-A03200500292

PATIENT
  Age: 55 Year
  Sex: Male

DRUGS (2)
  1. AMBIEN [Suspect]
     Indication: INSOMNIA
     Route: 048
     Dates: start: 20050122, end: 20050122
  2. SYNTHROID [Concomitant]
     Dosage: UNK
     Route: 048

REACTIONS (2)
  - CONFUSIONAL STATE [None]
  - HEPATIC FAILURE [None]
